FAERS Safety Report 16713059 (Version 2)
Quarter: 2019Q3

REPORT INFORMATION
  Report Type: Spontaneous
  Country: PT (occurrence: PT)
  Receive Date: 20190817
  Receipt Date: 20190913
  Transmission Date: 20191004
  Serious: Yes (Death, Other)
  Sender: FDA-Public Use
  Company Number: PT-AUROBINDO-AUR-APL-2019-054228

PATIENT
  Age: 10 Month
  Sex: Male

DRUGS (17)
  1. LAMIVUDINE. [Suspect]
     Active Substance: LAMIVUDINE
     Dosage: 4 MILLIGRAM/KILOGRAM, TWO TIMES A DAY
     Route: 065
  2. AMPHOTERICIN B. [Concomitant]
     Active Substance: AMPHOTERICIN B
     Indication: PRODUCT USED FOR UNKNOWN INDICATION
     Dosage: 3 MILLIGRAM/KILOGRAM, ONCE A DAY
     Route: 065
  3. METHYLPREDNISOLONE. [Concomitant]
     Active Substance: METHYLPREDNISOLONE
     Indication: PNEUMOCYSTIS JIROVECII PNEUMONIA
     Dosage: 2 MILLIGRAM/KILOGRAM, ONCE A DAY
     Route: 065
  4. ZIDOVUDINE. [Suspect]
     Active Substance: ZIDOVUDINE
     Indication: HIV INFECTION
     Dosage: 24 MILLIGRAM/KILOGRAM, ONCE A DAY, (12 MG/KG, BID)
     Route: 065
  5. GENTAMICINE [Suspect]
     Active Substance: GENTAMICIN
     Indication: DEVICE RELATED SEPSIS
     Dosage: 5 MILLIGRAM/KILOGRAM, ONCE A DAY
     Route: 065
  6. LOPINAVIR;RITONAVIR [Suspect]
     Active Substance: LOPINAVIR\RITONAVIR
     Indication: HIV INFECTION
     Dosage: (230 MG/M2/DOSE OF LOPINAVIR 2ID)
     Route: 065
  7. PAROMOMYCIN [Concomitant]
     Active Substance: PAROMOMYCIN
     Indication: PRODUCT USED FOR UNKNOWN INDICATION
     Dosage: 30 MILLIGRAM/KILOGRAM, ONCE A DAY
     Route: 065
  8. AZITHROMYCIN ANHYDROUS. [Concomitant]
     Active Substance: AZITHROMYCIN ANHYDROUS
     Dosage: 10 MILLIGRAM/KILOGRAM, ONCE A DAY
     Route: 065
  9. CEFTRIAXONE. [Concomitant]
     Active Substance: CEFTRIAXONE
     Indication: PNEUMOCYSTIS JIROVECII PNEUMONIA
     Dosage: 100 MILLIGRAM/KILOGRAM, ONCE A DAY
     Route: 065
  10. MEROPENEM. [Concomitant]
     Active Substance: MEROPENEM
     Indication: PRODUCT USED FOR UNKNOWN INDICATION
     Dosage: 60 MILLIGRAM/KILOGRAM, ONCE A DAY
     Route: 065
  11. COTRIMOXAZOLE [Concomitant]
     Active Substance: SULFAMETHOXAZOLE\TRIMETHOPRIM
     Indication: PNEUMOCYSTIS JIROVECII PNEUMONIA
     Dosage: 15 MILLIGRAM/KILOGRAM, ONCE A DAY
     Route: 065
  12. LAMIVUDINE. [Suspect]
     Active Substance: LAMIVUDINE
     Indication: HIV INFECTION
     Dosage: 8 MILLIGRAM/KILOGRAM, ONCE A DAY
     Route: 065
  13. GANCICLOVIR. [Concomitant]
     Active Substance: GANCICLOVIR
     Indication: PRODUCT USED FOR UNKNOWN INDICATION
     Dosage: 10 MILLIGRAM/KILOGRAM, ONCE A DAY
     Route: 065
  14. VANCOMYCIN [Suspect]
     Active Substance: VANCOMYCIN
     Indication: PNEUMOCYSTIS JIROVECII PNEUMONIA
     Dosage: 40 MILLIGRAM/KILOGRAM, ONCE A DAY
     Route: 065
  15. VANCOMYCIN [Suspect]
     Active Substance: VANCOMYCIN
     Indication: DEVICE RELATED SEPSIS
  16. CEFOTAXIME [Suspect]
     Active Substance: CEFOTAXIME SODIUM
     Indication: DEVICE RELATED SEPSIS
     Dosage: 150 MILLIGRAM/KILOGRAM, ONCE A DAY
     Route: 065
  17. AZITHROMYCIN ANHYDROUS. [Concomitant]
     Active Substance: AZITHROMYCIN ANHYDROUS
     Indication: PNEUMOCYSTIS JIROVECII PNEUMONIA
     Dosage: 20 MILLIGRAM/KILOGRAM, EVERY WEEK
     Route: 065

REACTIONS (29)
  - Disseminated intravascular coagulation [Fatal]
  - Reticulocytosis [Unknown]
  - Hepatosplenomegaly [Unknown]
  - Vomiting [Unknown]
  - Red blood cell schistocytes present [Unknown]
  - Pyrexia [Unknown]
  - ADAMTS13 activity decreased [Unknown]
  - Device related sepsis [Unknown]
  - Thrombotic microangiopathy [Unknown]
  - Anaemia [Unknown]
  - Large intestinal haemorrhage [Fatal]
  - HIV associated nephropathy [Unknown]
  - Haemophagocytic lymphohistiocytosis [Unknown]
  - Oedema [Unknown]
  - Hypoalbuminaemia [Unknown]
  - Pathogen resistance [Unknown]
  - Proteinuria [Unknown]
  - General physical health deterioration [Unknown]
  - Stupor [Unknown]
  - Rash macular [Unknown]
  - Diarrhoea [Unknown]
  - Transaminases increased [Unknown]
  - Diarrhoea haemorrhagic [Unknown]
  - Immune reconstitution inflammatory syndrome [Unknown]
  - Weight decreased [Unknown]
  - Klebsiella infection [Unknown]
  - Poor peripheral circulation [Unknown]
  - Haemolysis [Unknown]
  - CD4 lymphocytes increased [Unknown]
